FAERS Safety Report 6153700-X (Version None)
Quarter: 2009Q2

REPORT INFORMATION
  Report Type: 
  Country: None (occurrence: None)
  Receive Date: 20090413
  Receipt Date: 20090401
  Transmission Date: 20091009
  Serious: Yes (Other)
  Sender: FDA-Public Use
  Company Number: US-GENENTECH-278650

PATIENT
  Sex: Female
  Weight: 89.796 kg

DRUGS (14)
  1. RITUXAN [Suspect]
     Indication: NON-HODGKIN'S LYMPHOMA
     Dosage: 720 UNK, Q3W
     Route: 042
     Dates: start: 20070222, end: 20070801
  2. RITUXAN [Suspect]
     Dosage: QWK X4, Q6M
     Route: 042
     Dates: start: 20071201
  3. CYCLOPHOSPHAMIDE [Concomitant]
     Indication: NON-HODGKIN'S LYMPHOMA
     Dosage: Q3W
     Dates: start: 20070201, end: 20070801
  4. VINCRISTINE [Concomitant]
     Indication: NON-HODGKIN'S LYMPHOMA
     Dosage: Q3W
     Dates: start: 20070201, end: 20070801
  5. PREDNISONE [Concomitant]
     Indication: NON-HODGKIN'S LYMPHOMA
     Dosage: Q3W
     Dates: start: 20070201, end: 20070801
  6. PREMARIN [Concomitant]
     Indication: DRUG USE FOR UNKNOWN INDICATION
  7. SYNTHROID [Concomitant]
     Indication: DRUG USE FOR UNKNOWN INDICATION
  8. ACIPHEX [Concomitant]
     Indication: DRUG USE FOR UNKNOWN INDICATION
  9. HYDRO-CHLOR [Concomitant]
     Indication: DRUG USE FOR UNKNOWN INDICATION
  10. TENORMIN [Concomitant]
     Indication: DRUG USE FOR UNKNOWN INDICATION
  11. BENTYL [Concomitant]
     Indication: DRUG USE FOR UNKNOWN INDICATION
     Dosage: UNK
  12. DECADRON [Concomitant]
     Indication: DRUG USE FOR UNKNOWN INDICATION
  13. ZANTAC [Concomitant]
     Indication: DRUG USE FOR UNKNOWN INDICATION
  14. ALOXI [Concomitant]
     Indication: DRUG USE FOR UNKNOWN INDICATION

REACTIONS (1)
  - BLOOD URINE PRESENT [None]
